FAERS Safety Report 8167176-4 (Version None)
Quarter: 2012Q1

REPORT INFORMATION
  Report Type: 
  Country: None (occurrence: None)
  Receive Date: 20120227
  Receipt Date: 20120213
  Transmission Date: 20120608
  Serious: Yes (Death)
  Sender: FDA-Public Use
  Company Number: US-ELI_LILLY_AND_COMPANY-US201202003947

PATIENT
  Age: 45 Year
  Sex: Female

DRUGS (10)
  1. PRAMIPEXOLE DIHYCHLLORIDE [Concomitant]
  2. CLONAZEPAM [Concomitant]
  3. ACETAMINOPHEN W/ PROPOXYPHENE HCL [Concomitant]
  4. PROZAC [Suspect]
  5. DIPHENHYDRAMINE HCL [Concomitant]
  6. PREGABALIN [Concomitant]
  7. LAMOTRIGINE [Concomitant]
  8. ACETAMINOPHEN AND HYDROCODONE BITARTRATE [Concomitant]
  9. ACETAMINOPHEN W/DIPHENHYDRAMINE HYDROCHLORIDE [Concomitant]
  10. TOPIRAMATE [Concomitant]

REACTIONS (1)
  - TOXICITY TO VARIOUS AGENTS [None]
